FAERS Safety Report 12043962 (Version 1)
Quarter: 2016Q1

REPORT INFORMATION
  Report Type: Spontaneous
  Country: IT (occurrence: IT)
  Receive Date: 20160208
  Receipt Date: 20160208
  Transmission Date: 20160526
  Serious: Yes (Other)
  Sender: FDA-Public Use
  Company Number: ALCN2016IT000992

PATIENT
  Age: 42 Year
  Sex: Female

DRUGS (1)
  1. TOBRADEX [Suspect]
     Active Substance: DEXAMETHASONE\TOBRAMYCIN
     Indication: CONJUNCTIVITIS
     Dosage: UNK
     Route: 047
     Dates: start: 20150818, end: 20150824

REACTIONS (2)
  - Erythema [Recovering/Resolving]
  - Oedema [Recovering/Resolving]

NARRATIVE: CASE EVENT DATE: 20150819
